FAERS Safety Report 8304285 (Version 5)
Quarter: 2013Q1

REPORT INFORMATION
  Report Type: Spontaneous
  Country: JP (occurrence: None)
  Receive Date: 20111213
  Receipt Date: 20121213
  Transmission Date: 20140127
  Serious: Yes (Life-Threatening, Hospitalization)
  Sender: FDA-Public Use
  Company Number: DSJ-2011-25769

PATIENT
  Age: 67 Year
  Sex: Male
  Weight: 68 kg

DRUGS (6)
  1. OFLOXACIN [Suspect]
     Indication: EXTERNAL EAR INFLAMMATION
     Dosage: 6-10 DROPS (2 IN 1 D), AURICULAR (OTIC)
     Route: 001
     Dates: start: 20110917, end: 20110926
  2. OFLOXACIN [Suspect]
     Indication: ANTIBIOTIC PROPHYLAXIS
     Dosage: 6-10 DROPS (2 IN 1 D), AURICULAR (OTIC)
     Route: 001
     Dates: start: 20110917, end: 20110926
  3. OLOPATADINE HYDROCHLORIDE [Suspect]
     Indication: INFLAMMATION
     Dosage: 10 MG (5 MG, 2 IN 1 D), PER ORAL
     Route: 048
     Dates: start: 20111003, end: 20111011
  4. NIZATIDINE [Suspect]
     Indication: DYSPEPSIA
     Dosage: 150 MG (75 MG, 2 IN 1 D), PER ORAL
     Route: 048
     Dates: start: 20111011, end: 20111018
  5. CELESTAMINE [Suspect]
     Indication: INFLAMMATION
     Dosage: 1 DOSAGE FORMS (1 DOSAGE FORMS, 1 IN 1 D) PER ORAL
     Route: 048
     Dates: start: 20111011, end: 20111018
  6. BETAMETHASONE [Concomitant]

REACTIONS (5)
  - Renal failure [None]
  - Rash generalised [None]
  - Drug eruption [None]
  - Cardiac failure [None]
  - Stevens-Johnson syndrome [None]
